FAERS Safety Report 6027778-8 (Version None)
Quarter: 2009Q1

REPORT INFORMATION
  Report Type: 
  Country: None (occurrence: None)
  Receive Date: 20090105
  Receipt Date: 20081223
  Transmission Date: 20090719
  Serious: Yes (Hospitalization)
  Sender: FDA-Public Use
  Company Number: ES-ROXANE LABORATORIES, INC.-2008-RO-00466RO

PATIENT
  Age: 46 Year
  Sex: Female

DRUGS (5)
  1. PREDNISONE TAB [Suspect]
     Indication: CROHN'S DISEASE
  2. OXCARBAZEPINE [Suspect]
     Indication: POLYNEUROPATHY
  3. SULFASALAZINE [Suspect]
     Indication: CROHN'S DISEASE
  4. VALSARTAN [Suspect]
     Indication: CROHN'S DISEASE
  5. AMOXICILLIN AND CLAVULANATE POTASSIUM [Suspect]
     Indication: IMPETIGO

REACTIONS (1)
  - DRUG HYPERSENSITIVITY [None]
